FAERS Safety Report 8870210 (Version 1)
Quarter: 2012Q4

REPORT INFORMATION
  Report Type: 
  Country: US (occurrence: US)
  Receive Date: 20121026
  Receipt Date: 20121026
  Transmission Date: 20130627
  Serious: No
  Sender: FDA-Public Use
  Company Number: US-AMGEN-USASP2012043790

PATIENT
  Sex: Female

DRUGS (6)
  1. ENBREL [Suspect]
     Indication: PRODUCT USED FOR UNKNOWN INDICATION
     Dosage: 50 mg, qwk
     Route: 058
  2. TRAVATAN [Concomitant]
  3. ENALAPRIL [Concomitant]
     Dosage: 2.5 mg, UNK
  4. LEVOTHYROXIN [Concomitant]
     Dosage: 112 mcg, UNK
  5. VITAMIN D /00107901/ [Concomitant]
     Dosage: 1000 unit, UNK
  6. CALCIUM [Concomitant]
     Dosage: 500, UNK

REACTIONS (1)
  - Drug ineffective [Unknown]
